FAERS Safety Report 17898745 (Version 1)
Quarter: 2020Q2

REPORT INFORMATION
  Report Type: Spontaneous
  Country: US (occurrence: US)
  Receive Date: 20200616
  Receipt Date: 20200616
  Transmission Date: 20200714
  Serious: Yes (Other)
  Sender: FDA-Public Use
  Company Number: US-ALLERGAN-1953278US

PATIENT
  Sex: Male

DRUGS (1)
  1. PODOFILOX UNK [Suspect]
     Active Substance: PODOFILOX
     Indication: SKIN PAPILLOMA
     Dosage: UNK, BID
     Route: 061
     Dates: start: 20191215, end: 20191218

REACTIONS (2)
  - Chemical burn of skin [Not Recovered/Not Resolved]
  - Skin hypopigmentation [Not Recovered/Not Resolved]

NARRATIVE: CASE EVENT DATE: 20191219
